FAERS Safety Report 10425394 (Version 3)
Quarter: 2014Q4

REPORT INFORMATION
  Report Type: Spontaneous
  Country: US (occurrence: None)
  Receive Date: 20140722
  Receipt Date: 20141106
  Transmission Date: 20150528
  Serious: Yes (Other)
  Sender: FDA-Public Use
  Company Number: AEGR000446

PATIENT
  Age: 51 Year
  Sex: Male
  Weight: 92.1 kg

DRUGS (3)
  1. ATORVASTATIN (ATORVASTATIN CALCIUM) [Concomitant]
  2. JUXTAPID [Suspect]
     Active Substance: LOMITAPIDE MESYLATE
     Indication: TYPE IIA HYPERLIPIDAEMIA
     Route: 048
     Dates: start: 20131106, end: 20140429
  3. CELEBREX [Concomitant]
     Active Substance: CELECOXIB

REACTIONS (4)
  - Clostridium difficile infection [None]
  - Diarrhoea [None]
  - Low density lipoprotein increased [None]
  - Abdominal pain [None]

NARRATIVE: CASE EVENT DATE: 20140429
